FAERS Safety Report 9240201 (Version 2)
Quarter: 2013Q2

REPORT INFORMATION
  Report Type: Spontaneous
  Country: US (occurrence: US)
  Receive Date: 20130418
  Receipt Date: 20130610
  Transmission Date: 20140414
  Serious: No
  Sender: FDA-Public Use
  Company Number: US-PFIZER INC-2013117944

PATIENT
  Age: 4 Year
  Sex: Male

DRUGS (2)
  1. CHILDRENS ADVIL [Suspect]
     Indication: PAIN
     Dosage: ONE AND A HALF TEA SPOONS, 2X/DAY
     Route: 048
     Dates: start: 20130413
  2. AMOXICILLIN [Concomitant]
     Indication: EAR INFECTION
     Dosage: UNK

REACTIONS (2)
  - Dermatitis contact [Unknown]
  - Rash [Not Recovered/Not Resolved]
